FAERS Safety Report 15134948 (Version 1)
Quarter: 2018Q3

REPORT INFORMATION
  Report Type: Spontaneous
  Country: US (occurrence: US)
  Receive Date: 20180616
  Receipt Date: 20180616
  Transmission Date: 20181010
  Serious: Yes (Other)
  Sender: FDA-Public Use
  Company Number: None

PATIENT
  Age: 60 Year
  Sex: Female
  Weight: 90 kg

DRUGS (1)
  1. PROPANOLOL 10MG [Suspect]
     Active Substance: PROPRANOLOL HYDROCHLORIDE
     Indication: ARRHYTHMIA
     Dates: start: 20180601

REACTIONS (5)
  - Product substitution issue [None]
  - Heart rate increased [None]
  - Heart rate irregular [None]
  - Dyspnoea [None]
  - Therapeutic response changed [None]

NARRATIVE: CASE EVENT DATE: 20180601
